FAERS Safety Report 8391323-2 (Version None)
Quarter: 2012Q2

REPORT INFORMATION
  Report Type: 
  Country: None (occurrence: None)
  Receive Date: 20120529
  Receipt Date: 20120515
  Transmission Date: 20120825
  Serious: Yes (Other)
  Sender: FDA-Public Use
  Company Number: GB-JNJFOC-20120507501

PATIENT
  Sex: Female

DRUGS (5)
  1. PALIPERIDONE [Suspect]
     Indication: SCHIZOPHRENIA
     Dosage: DAY 8
     Route: 030
     Dates: start: 20120501
  2. SULPIRIDE [Concomitant]
     Indication: SCHIZOPHRENIA
     Route: 048
  3. CLONAZEPAM [Concomitant]
     Route: 065
  4. PROCYCLIDINE HYDROCHLORIDE 2MG TAB [Concomitant]
     Route: 065
  5. PALIPERIDONE [Suspect]
     Dosage: DAY 1
     Route: 030
     Dates: start: 20120101

REACTIONS (13)
  - CHEST DISCOMFORT [None]
  - AGITATION [None]
  - HALLUCINATION, VISUAL [None]
  - DIZZINESS [None]
  - FATIGUE [None]
  - HUNGER [None]
  - DISTURBANCE IN ATTENTION [None]
  - ANXIETY [None]
  - MUSCULOSKELETAL STIFFNESS [None]
  - WEIGHT INCREASED [None]
  - HALLUCINATION, AUDITORY [None]
  - SPEECH DISORDER [None]
  - ABNORMAL BEHAVIOUR [None]
